FAERS Safety Report 6941273-0 (Version None)
Quarter: 2010Q3

REPORT INFORMATION
  Report Type: 
  Country: None (occurrence: None)
  Receive Date: 20100825
  Receipt Date: 20100730
  Transmission Date: 20110219
  Serious: No
  Sender: FDA-Public Use
  Company Number: US-BRISTOL-MYERS SQUIBB COMPANY-15218670

PATIENT
  Age: 65 Year
  Sex: Male

DRUGS (3)
  1. ONGLYZA [Suspect]
     Dates: start: 20100726
  2. INSULIN [Concomitant]
  3. ATENOLOL [Concomitant]

REACTIONS (3)
  - ABDOMINAL DISTENSION [None]
  - CHEST DISCOMFORT [None]
  - DYSPNOEA [None]
